FAERS Safety Report 13246446 (Version 2)
Quarter: 2017Q1

REPORT INFORMATION
  Report Type: Spontaneous
  Country: FR (occurrence: FR)
  Receive Date: 20170217
  Receipt Date: 20170309
  Transmission Date: 20170428
  Serious: Yes (Other)
  Sender: FDA-Public Use
  Company Number: FR-ABBVIE-17K-056-1873234-00

PATIENT
  Age: 17 Year
  Sex: Female
  Weight: 50 kg

DRUGS (2)
  1. HUMIRA [Suspect]
     Active Substance: ADALIMUMAB
     Indication: CROHN^S DISEASE
     Route: 058
     Dates: start: 201408, end: 2016
  2. HUMIRA [Suspect]
     Active Substance: ADALIMUMAB
     Route: 058

REACTIONS (4)
  - Septal panniculitis [Recovered/Resolved]
  - Hypersensitivity vasculitis [Recovered/Resolved]
  - Rash macular [Recovering/Resolving]
  - Purpura [Recovering/Resolving]

NARRATIVE: CASE EVENT DATE: 201608
